FAERS Safety Report 7380528-5 (Version None)
Quarter: 2011Q1

REPORT INFORMATION
  Report Type: 
  Country: None (occurrence: None)
  Receive Date: 20110329
  Receipt Date: 20110322
  Transmission Date: 20110831
  Serious: Yes (Other)
  Sender: FDA-Public Use
  Company Number: FR-PFIZER INC-2011035518

PATIENT
  Age: 84 Year
  Sex: Female
  Weight: 49 kg

DRUGS (10)
  1. ACETAMINOPHEN [Concomitant]
     Indication: OSTEOARTHRITIS
     Dosage: 1000 MG, 3X/DAY
     Route: 048
     Dates: start: 20110110
  2. TIMOLOL [Concomitant]
  3. RYTHMOL [Concomitant]
     Indication: ARRHYTHMIA
     Dosage: 150 MG, 2X/DAY
     Route: 048
  4. LYRICA [Suspect]
     Indication: NEURALGIA
  5. VASTAREL [Concomitant]
     Indication: MACULAR DEGENERATION
     Dosage: 35 MG, 2X/DAY
     Route: 048
  6. ATENOLOL [Concomitant]
     Indication: HYPERTENSION
     Dosage: 50 MG, 1X/DAY
     Route: 048
  7. PROPAFENONE [Concomitant]
     Indication: ARRHYTHMIA
  8. LYRICA [Suspect]
     Indication: ARTHRALGIA
     Dosage: 25 MG MORNING AND 50 MG EVENING
     Dates: start: 20110207, end: 20110210
  9. CACIT D3 [Concomitant]
     Indication: OSTEOPOROSIS
  10. FORLAX [Concomitant]

REACTIONS (1)
  - TRANSIENT ISCHAEMIC ATTACK [None]
